FAERS Safety Report 9902003 (Version 3)
Quarter: 2015Q3

REPORT INFORMATION
  Report Type: Spontaneous
  Country: US (occurrence: US)
  Receive Date: 20140217
  Receipt Date: 20150810
  Transmission Date: 20151125
  Serious: No
  Sender: FDA-Public Use
  Company Number: US-GILEAD-2011-0046224

PATIENT
  Age: 75 Year
  Sex: Female

DRUGS (2)
  1. LETAIRIS [Suspect]
     Active Substance: AMBRISENTAN
     Indication: PULMONARY HYPERTENSION
     Dosage: 10 MG, UNK
     Route: 048
     Dates: start: 20110922, end: 20111102
  2. COUMADIN [Concomitant]
     Active Substance: WARFARIN SODIUM
     Indication: ATRIAL FIBRILLATION

REACTIONS (6)
  - Fatigue [Unknown]
  - Feeling abnormal [Unknown]
  - Unevaluable event [Unknown]
  - Oedema [Unknown]
  - International normalised ratio [Unknown]
  - Dyspnoea [Unknown]
